FAERS Safety Report 15660532 (Version 1)
Quarter: 2018Q4

REPORT INFORMATION
  Report Type: Spontaneous
  Country: US (occurrence: US)
  Receive Date: 20181115
  Receipt Date: 20181115
  Transmission Date: 20190205
  Serious: Yes (Hospitalization)
  Sender: FDA-Public Use
  Company Number: None

PATIENT
  Age: 12 Year
  Sex: Female
  Weight: 123 kg

DRUGS (10)
  1. CYCLOPHOSPHAMIDE. [Suspect]
     Active Substance: CYCLOPHOSPHAMIDE
     Dates: end: 20120703
  2. ETOPOSIDE (VP-16) [Suspect]
     Active Substance: ETOPOSIDE
     Dates: end: 20120703
  3. PREDNISONE. [Suspect]
     Active Substance: PREDNISONE
  4. VINCRISTINE SULFATE. [Suspect]
     Active Substance: VINCRISTINE SULFATE
     Dates: end: 20120614
  5. CLOLAR [Suspect]
     Active Substance: CLOFARABINE
     Dates: end: 20120703
  6. MERCAPTOPRINE (6MP) [Suspect]
     Active Substance: MERCAPTOPURINE
  7. METHOTREXATE. [Suspect]
     Active Substance: METHOTREXATE
  8. CYTARABINE. [Suspect]
     Active Substance: CYTARABINE
     Dates: end: 20120602
  9. ONCASPAR [Suspect]
     Active Substance: PEGASPARGASE
     Dates: end: 20120608
  10. DAUNORUBICIN [Suspect]
     Active Substance: DAUNORUBICIN
     Dates: end: 20120503

REACTIONS (5)
  - Anaphylactic reaction [None]
  - Alanine aminotransferase increased [None]
  - Pyrexia [None]
  - Aspartate aminotransferase increased [None]
  - Blood culture positive [None]

NARRATIVE: CASE EVENT DATE: 20120714
